FAERS Safety Report 10607732 (Version 2)
Quarter: 2014Q4

REPORT INFORMATION
  Report Type: Report from Study
  Country: ES (occurrence: ES)
  Receive Date: 20141125
  Receipt Date: 20141125
  Transmission Date: 20150529
  Serious: Yes (Hospitalization)
  Sender: FDA-Public Use
  Company Number: ES-ABBVIE-12P-144-1023553-00

PATIENT
  Sex: Female

DRUGS (14)
  1. INVESTIGATIONAL DRUG [Concomitant]
     Active Substance: INVESTIGATIONAL PRODUCT
     Indication: FISTULA
     Dates: start: 20100202
  2. METRONIDAZOL [Concomitant]
     Active Substance: METRONIDAZOLE
     Indication: PYREXIA
  3. FOLIC ACID. [Concomitant]
     Active Substance: FOLIC ACID
     Indication: VITAMIN SUPPLEMENTATION
     Dates: start: 201106, end: 20110830
  4. KETOROLACO [Concomitant]
     Indication: PAIN
     Dates: start: 20090520, end: 20090521
  5. CERTOLIZUMAB [Concomitant]
     Active Substance: CERTOLIZUMAB
     Indication: ANAL FISTULA
  6. HUMIRA [Suspect]
     Active Substance: ADALIMUMAB
     Dosage: 80 MG WEEK 2
     Route: 058
  7. HUMIRA [Suspect]
     Active Substance: ADALIMUMAB
     Route: 058
     Dates: end: 20091124
  8. CERTOLIZUMAB [Concomitant]
     Active Substance: CERTOLIZUMAB
     Indication: FISTULA DISCHARGE
  9. METHOTREXATE (METHOTREXATE SODIUM) [Concomitant]
     Active Substance: METHOTREXATE SODIUM
     Indication: DRUG INTOLERANCE
  10. METRONIDAZOL [Concomitant]
     Active Substance: METRONIDAZOLE
     Indication: FISTULA DISCHARGE
     Dates: start: 20110809, end: 20110830
  11. HUMIRA [Suspect]
     Active Substance: ADALIMUMAB
     Indication: CROHN^S DISEASE
     Dosage: 160 MG (BASELINE)
     Route: 058
     Dates: start: 20061215, end: 20061215
  12. METHOTREXATE (METHOTREXATE SODIUM) [Concomitant]
     Active Substance: METHOTREXATE SODIUM
     Indication: DRUG DEPENDENCE
     Dates: start: 201106, end: 20110830
  13. CERTOLIZUMAB [Concomitant]
     Active Substance: CERTOLIZUMAB
     Indication: CONDITION AGGRAVATED
     Dates: start: 20110201, end: 20110411
  14. METRONIDAZOL [Concomitant]
     Active Substance: METRONIDAZOLE
     Indication: PAIN

REACTIONS (1)
  - Fistula discharge [Unknown]

NARRATIVE: CASE EVENT DATE: 20111020
